FAERS Safety Report 5501494-0 (Version None)
Quarter: 2007Q4

REPORT INFORMATION
  Report Type: 
  Country: None (occurrence: None)
  Receive Date: 20071019
  Receipt Date: 20070919
  Transmission Date: 20080405
  Serious: Yes (Hospitalization, Other)
  Sender: FDA-Public Use
  Company Number: HQWYE231420SEP07

PATIENT
  Age: 45 Year
  Sex: Male
  Weight: 116.22 kg

DRUGS (2)
  1. ADVIL PM [Suspect]
     Indication: INSOMNIA
     Dosage: 2 CAPLETS DAILY, ORAL
     Route: 048
     Dates: start: 20070902, end: 20070915
  2. OXYGEN [Concomitant]

REACTIONS (1)
  - DIZZINESS [None]
